FAERS Safety Report 24199618 (Version 9)
Quarter: 2025Q1

REPORT INFORMATION
  Report Type: Report from Study
  Country: US (occurrence: US)
  Receive Date: 20240812
  Receipt Date: 20250114
  Transmission Date: 20250409
  Serious: Yes (Hospitalization, Other)
  Sender: TAKEDA
  Company Number: US-TAKEDA-2024TUS005411

PATIENT
  Age: 67 Year
  Sex: Male
  Weight: 73.197 kg

DRUGS (7)
  1. PONATINIB [Suspect]
     Active Substance: PONATINIB
     Indication: Breast enlargement
     Dosage: 15 MILLIGRAM, QOD
  2. PONATINIB [Suspect]
     Active Substance: PONATINIB
     Indication: Chronic myeloid leukaemia recurrent
     Dosage: 15 MILLIGRAM, QD
     Dates: start: 20181004
  3. PONATINIB [Suspect]
     Active Substance: PONATINIB
     Dosage: 15 MILLIGRAM, QD
  4. PONATINIB [Suspect]
     Active Substance: PONATINIB
     Dosage: 15 MILLIGRAM, QOD
  5. PONATINIB [Suspect]
     Active Substance: PONATINIB
     Dosage: 15 MILLIGRAM, QD
  6. PONATINIB [Suspect]
     Active Substance: PONATINIB
     Dosage: 15 MILLIGRAM, QD
  7. PONATINIB [Suspect]
     Active Substance: PONATINIB

REACTIONS (17)
  - Chronic myeloid leukaemia recurrent [Not Recovered/Not Resolved]
  - Feeling abnormal [Recovered/Resolved]
  - Faecaloma [Not Recovered/Not Resolved]
  - Anxiety [Unknown]
  - Cataract [Unknown]
  - Blood pressure increased [Unknown]
  - Hyponatraemia [Not Recovered/Not Resolved]
  - Nervousness [Unknown]
  - Blood sodium decreased [Unknown]
  - Asthenia [Unknown]
  - Product dose omission issue [Unknown]
  - Hypoglycaemia [Unknown]
  - Carpal tunnel syndrome [Unknown]
  - Product prescribing error [Unknown]
  - Blood pressure inadequately controlled [Unknown]
  - Illness [Not Recovered/Not Resolved]
  - Malaise [Unknown]

NARRATIVE: CASE EVENT DATE: 20241015
